FAERS Safety Report 21560343 (Version 2)
Quarter: 2022Q4

REPORT INFORMATION
  Report Type: Report from Study
  Country: RO (occurrence: RO)
  Receive Date: 20221107
  Receipt Date: 20221121
  Transmission Date: 20230112
  Serious: Yes (Death, Hospitalization, Other)
  Sender: FDA-Public Use
  Company Number: RO-ABBVIE-4186259

PATIENT
  Age: 71 Year
  Sex: Male

DRUGS (1)
  1. GLECAPREVIR\PIBRENTASVIR [Suspect]
     Active Substance: GLECAPREVIR\PIBRENTASVIR
     Indication: Chronic hepatitis C
     Dosage: 300/120MG
     Route: 048
     Dates: start: 20221001, end: 20221029

REACTIONS (29)
  - Haemorrhagic stroke [Fatal]
  - Faeces soft [Recovered/Resolved]
  - Acute respiratory failure [Not Recovered/Not Resolved]
  - Hemiplegia [Not Recovered/Not Resolved]
  - Asthenia [Not Recovered/Not Resolved]
  - Cerebral infarction [Fatal]
  - Cellulitis [Not Recovered/Not Resolved]
  - Fatigue [Not Recovered/Not Resolved]
  - Blood pressure increased [Not Recovered/Not Resolved]
  - Hypoalbuminaemia [Recovered/Resolved]
  - Enterocolitis [Recovered/Resolved]
  - Aphasia [Not Recovered/Not Resolved]
  - Cardio-respiratory arrest [Recovered/Resolved]
  - Mitral valve incompetence [Fatal]
  - Chronic kidney disease [Fatal]
  - Chronic kidney disease-mineral and bone disorder [Fatal]
  - Hypertensive heart disease [Fatal]
  - Acute pulmonary oedema [Fatal]
  - Angina pectoris [Fatal]
  - Tricuspid valve incompetence [Fatal]
  - Pulmonary hypertension [Fatal]
  - Nephroangiosclerosis [Fatal]
  - Prostatic adenoma [Fatal]
  - Glomerulonephritis chronic [Fatal]
  - Aortic stenosis [Fatal]
  - Arteriosclerosis [Fatal]
  - Hypertension [Fatal]
  - Dyslipidaemia [Fatal]
  - Anaemia [Fatal]

NARRATIVE: CASE EVENT DATE: 20220101
